FAERS Safety Report 23560735 (Version 2)
Quarter: 2024Q1

REPORT INFORMATION
  Report Type: Spontaneous
  Country: US (occurrence: US)
  Receive Date: 20240223
  Receipt Date: 20240226
  Transmission Date: 20240409
  Serious: Yes (Other)
  Sender: FDA-Public Use
  Company Number: US-VER-202400045

PATIENT
  Sex: Male

DRUGS (2)
  1. TRELSTAR [Suspect]
     Active Substance: TRIPTORELIN PAMOATE
     Indication: Metastases to spine
     Dosage: 11.25MG EVERY 12 WEEKS
     Route: 065
  2. TRELSTAR [Suspect]
     Active Substance: TRIPTORELIN PAMOATE
     Indication: Prostate cancer
     Dosage: 11.25MG EVERY 12 WEEKS
     Route: 065

REACTIONS (2)
  - Off label use [Unknown]
  - Type 2 diabetes mellitus [Unknown]
